FAERS Safety Report 8057173-1 (Version None)
Quarter: 2012Q1

REPORT INFORMATION
  Report Type: 
  Country: None (occurrence: None)
  Receive Date: 20120119
  Receipt Date: 20120117
  Transmission Date: 20120608
  Serious: Yes (Hospitalization, Other)
  Sender: FDA-Public Use
  Company Number: US-B.I. PHARMACEUTICALS,INC./RIDGEFIELD-2011-BP-28160BP

PATIENT

DRUGS (8)
  1. PRADAXA [Suspect]
     Indication: ATRIAL FIBRILLATION
     Dosage: 150 MG
     Route: 048
     Dates: start: 20111111, end: 20111207
  2. LOSARTAN POTASSIUM [Concomitant]
     Indication: HYPERTENSION
  3. METOLAZONE [Concomitant]
     Indication: HYPERTENSION
  4. LOSARTAN POTASSIUM [Concomitant]
     Indication: CARDIAC FAILURE CONGESTIVE
     Dosage: 100 MG
     Dates: start: 20110216
  5. METOLAZONE [Concomitant]
     Indication: CARDIAC FAILURE CONGESTIVE
     Dates: start: 20110216
  6. ASPIRIN [Concomitant]
     Indication: ATRIAL FIBRILLATION
     Dosage: 81 MG
     Dates: start: 20111022, end: 20111207
  7. FUROSEMIDE [Concomitant]
     Indication: CARDIAC FAILURE CONGESTIVE
     Dosage: 80 MG
     Dates: start: 20110216
  8. FUROSEMIDE [Concomitant]
     Indication: HYPERTENSION

REACTIONS (2)
  - INTESTINAL ISCHAEMIA [None]
  - COLITIS ISCHAEMIC [None]
